FAERS Safety Report 10029893 (Version 1)
Quarter: 2014Q1

REPORT INFORMATION
  Report Type: Spontaneous
  Country: US (occurrence: None)
  Receive Date: 20140306
  Receipt Date: 20140306
  Transmission Date: 20141002
  Serious: Yes (Disabling)
  Sender: FDA-Public Use
  Company Number: 163-21880-12112341

PATIENT
  Age: 57 Year
  Sex: Female

DRUGS (2)
  1. REVLIMID [Suspect]
     Indication: MALIGNANT LYMPHOID NEOPLASM
     Dosage: 25 MG, 21 IN 21 D, PO
     Route: 048
     Dates: start: 20120622
  2. CYTOXAN (CYCLOPHOSPHAMIDE) [Concomitant]

REACTIONS (3)
  - Muscular weakness [None]
  - Muscular weakness [None]
  - Fatigue [None]
